FAERS Safety Report 23379702 (Version 1)
Quarter: 2024Q1

REPORT INFORMATION
  Report Type: Report from Study
  Country: CL (occurrence: CL)
  Receive Date: 20240108
  Receipt Date: 20240108
  Transmission Date: 20240409
  Serious: Yes (Other)
  Sender: FDA-Public Use
  Company Number: CL-ABBVIE-5574276

PATIENT
  Age: 28 Year
  Sex: Female

DRUGS (1)
  1. HUMIRA [Suspect]
     Active Substance: ADALIMUMAB
     Indication: Juvenile idiopathic arthritis
     Dosage: FORM STRENGTH WAS 40 MILLIGRAMS; STOP DATE TEXT: INTERRUPTED.
     Route: 058
     Dates: start: 20110428, end: 202312

REACTIONS (2)
  - Obesity [Unknown]
  - Post procedural infection [Unknown]

NARRATIVE: CASE EVENT DATE: 20231201
